FAERS Safety Report 6256683-7 (Version None)
Quarter: 2009Q3

REPORT INFORMATION
  Report Type: 
  Country: None (occurrence: None)
  Receive Date: 20090706
  Receipt Date: 20090623
  Transmission Date: 20100115
  Serious: Yes (Hospitalization, Other)
  Sender: FDA-Public Use
  Company Number: US-NOVOPROD-288668

PATIENT
  Sex: Female
  Weight: 95.238 kg

DRUGS (9)
  1. NOVOLOG [Suspect]
     Indication: TYPE 1 DIABETES MELLITUS
     Dosage: 2 IU PER HOUR WITH 7:1 RATIO
     Route: 058
     Dates: start: 20010101
  2. NOVOLOG [Suspect]
     Dosage: 1.8 IU PER HOUR WITH 10:1 RATIO
     Route: 058
     Dates: start: 20080716
  3. LASIX [Concomitant]
     Indication: FLUID RETENTION
     Route: 048
  4. DILTIAZEM [Concomitant]
     Indication: HYPERTENSION
     Route: 048
  5. LABETALOL                          /00422302/ [Concomitant]
     Indication: HYPERTENSION
     Route: 048
  6. COZAAR [Concomitant]
     Indication: PROPHYLAXIS
     Route: 048
  7. GABAPENTIN [Concomitant]
     Indication: FIBROMYALGIA
     Route: 048
  8. SCOPOLAMINE                        /00008701/ [Concomitant]
     Indication: IMPAIRED GASTRIC EMPTYING
     Route: 062
  9. COUMADIN [Concomitant]
     Indication: THROMBOSIS
     Route: 048

REACTIONS (4)
  - HYPERTENSION [None]
  - PREGNANCY [None]
  - RENAL IMPAIRMENT [None]
  - THROMBOSIS [None]
